FAERS Safety Report 23564448 (Version 2)
Quarter: 2024Q1

REPORT INFORMATION
  Report Type: Spontaneous
  Country: DE (occurrence: DE)
  Receive Date: 20240226
  Receipt Date: 20240320
  Transmission Date: 20240410
  Serious: Yes (Other)
  Sender: FDA-Public Use
  Company Number: None

PATIENT
  Age: 1 Day
  Sex: Female
  Weight: 2.395 kg

DRUGS (6)
  1. CERTOLIZUMAB PEGOL [Suspect]
     Active Substance: CERTOLIZUMAB PEGOL
     Indication: Rheumatoid arthritis
     Dosage: 200 MILLIGRAM, EV 2 WEEKS(QOW), 200 [MG/D ]/ SINCE 09/22
     Route: 064
     Dates: start: 20230119, end: 20231013
  2. PREDNISOLONE [Suspect]
     Active Substance: PREDNISOLONE
     Indication: Rheumatoid arthritis
     Dosage: 5 MILLIGRAM, 20 [MG/D ]/ 20 MG/D, GRADUALLY PHASED OUT (5 MG EVERY 10 D)
     Route: 064
     Dates: start: 20230804, end: 20230830
  3. IBUPROFEN [Concomitant]
     Active Substance: IBUPROFEN
     Indication: Rheumatoid arthritis
     Dosage: 1800 [MG/D ]/ 1200-1800 MG/D
     Route: 064
     Dates: start: 20230322, end: 20230330
  4. ACETAMINOPHEN [Concomitant]
     Active Substance: ACETAMINOPHEN
     Indication: Rheumatoid arthritis
     Dosage: 500 [MG/D ]/ SPORADICALLY, AS NEEDED
     Route: 064
  5. MISOPROSTOL [Concomitant]
     Active Substance: MISOPROSTOL
     Indication: Labour induction
     Dosage: DETAILS UNKNOWN
     Route: 064
     Dates: start: 20231005, end: 20231005
  6. PERTUSSIS VACCINE [Concomitant]
     Active Substance: PERTUSSIS VACCINE
     Indication: Immunisation
     Dosage: UNK
     Route: 064
     Dates: start: 20230801, end: 20230801

REACTIONS (4)
  - Small for dates baby [Recovered/Resolved]
  - Maternal exposure during pregnancy [Unknown]
  - Maternal exposure before pregnancy [Unknown]
  - Low birth weight baby [Unknown]

NARRATIVE: CASE EVENT DATE: 20230119
